FAERS Safety Report 9268793 (Version 1)
Quarter: 2013Q2

REPORT INFORMATION
  Report Type: Report from Study
  Country: US (occurrence: US)
  Receive Date: 20130502
  Receipt Date: 20130502
  Transmission Date: 20140414
  Serious: No
  Sender: FDA-Public Use
  Company Number: US-ALEXION-A201300629

PATIENT
  Age: 18 Year
  Sex: Female
  Weight: 63.49 kg

DRUGS (3)
  1. SOLIRIS [Suspect]
     Indication: HAEMOLYTIC URAEMIC SYNDROME
     Dosage: 1200 MG, Q2W
  2. SOLIRIS [Suspect]
     Dosage: 600 MG TWICE WEEKLY
     Dates: start: 20130626, end: 20130626
  3. SOLIRIS [Suspect]
     Dosage: 900 MG, QW
     Dates: start: 201207

REACTIONS (6)
  - Drug effect incomplete [Unknown]
  - Tachycardia [Recovered/Resolved]
  - Headache [Recovered/Resolved]
  - Urinary tract infection [Recovered/Resolved]
  - Hypertension [Not Recovered/Not Resolved]
  - Nausea [Recovered/Resolved]
